FAERS Safety Report 25516698 (Version 1)
Quarter: 2025Q3

REPORT INFORMATION
  Report Type: Spontaneous
  Country: KR (occurrence: KR)
  Receive Date: 20250704
  Receipt Date: 20250704
  Transmission Date: 20251020
  Serious: Yes (Disabling, Other)
  Sender: ACCORD
  Company Number: KR-Accord-484346

PATIENT
  Age: 53 Year
  Sex: Female

DRUGS (2)
  1. OXALIPLATIN [Suspect]
     Active Substance: OXALIPLATIN
     Indication: Adenocarcinoma of colon
  2. OXALIPLATIN [Suspect]
     Active Substance: OXALIPLATIN
     Indication: Clear cell renal cell carcinoma

REACTIONS (3)
  - Peripheral nerve hyperexcitability [Recovered/Resolved]
  - Neurotoxicity [Recovered/Resolved]
  - Paraplegia [Recovered/Resolved]
